FAERS Safety Report 13892383 (Version 1)
Quarter: 2017Q3

REPORT INFORMATION
  Report Type: Spontaneous
  Country: US (occurrence: US)
  Receive Date: 20170822
  Receipt Date: 20170822
  Transmission Date: 20171127
  Serious: No
  Sender: FDA-Public Use
  Company Number: US-ROCHE-769896

PATIENT
  Age: 29 Year
  Sex: Female
  Weight: 63.5 kg

DRUGS (9)
  1. ACTEMRA [Suspect]
     Active Substance: TOCILIZUMAB
     Route: 042
     Dates: start: 20110131, end: 20110131
  2. PREDNISONE. [Concomitant]
     Active Substance: PREDNISONE
     Indication: RHEUMATOID ARTHRITIS
     Dosage: AS NEEDED
     Route: 065
  3. ACTEMRA [Suspect]
     Active Substance: TOCILIZUMAB
     Route: 042
     Dates: start: 20100819, end: 20100819
  4. ARAVA [Concomitant]
     Active Substance: LEFLUNOMIDE
     Dosage: BY MOUTH
     Route: 048
  5. RITUXAN [Concomitant]
     Active Substance: RITUXIMAB
     Route: 065
  6. SULPHASALAZINE [Concomitant]
     Active Substance: SULFASALAZINE
     Indication: RHEUMATOID ARTHRITIS
     Dosage: ENTERIC COATED TABLET BY MOUTH.
     Route: 048
  7. LEFLUNOMIDE. [Concomitant]
     Active Substance: LEFLUNOMIDE
     Indication: RHEUMATOID ARTHRITIS
     Route: 065
  8. ACTEMRA [Suspect]
     Active Substance: TOCILIZUMAB
     Indication: RHEUMATOID ARTHRITIS
     Dosage: FORM:INFUSION
     Route: 042
     Dates: start: 20100617, end: 20100617
  9. ACTEMRA [Suspect]
     Active Substance: TOCILIZUMAB
     Dosage: 300 MG OF 600 MG DOSE WAS ADMINISTERED.
     Route: 042

REACTIONS (5)
  - Oropharyngeal pain [Recovered/Resolved]
  - Feeling hot [Recovered/Resolved]
  - Nausea [Recovered/Resolved]
  - Tension headache [Recovered/Resolved]
  - Headache [Recovered/Resolved]

NARRATIVE: CASE EVENT DATE: 20110317
